FAERS Safety Report 8242625-1 (Version None)
Quarter: 2012Q1

REPORT INFORMATION
  Report Type: 
  Country: None (occurrence: None)
  Receive Date: 20120329
  Receipt Date: 20120321
  Transmission Date: 20120608
  Serious: Yes (Other)
  Sender: FDA-Public Use
  Company Number: PHHY2012BR025719

PATIENT
  Age: 63 Year
  Sex: Male

DRUGS (1)
  1. IMATINIB MESYLATE [Suspect]

REACTIONS (5)
  - OPTIC ISCHAEMIC NEUROPATHY [None]
  - BLINDNESS UNILATERAL [None]
  - GENE MUTATION IDENTIFICATION TEST POSITIVE [None]
  - VASCULITIS [None]
  - NAIL BED DISORDER [None]
